FAERS Safety Report 12701724 (Version 1)
Quarter: 2016Q3

REPORT INFORMATION
  Report Type: Spontaneous
  Country: US (occurrence: US)
  Receive Date: 20160831
  Receipt Date: 20160831
  Transmission Date: 20161109
  Serious: No
  Sender: FDA-Public Use
  Company Number: US-JAZZ-2016-US-007334

PATIENT
  Sex: Female

DRUGS (37)
  1. FIBERCON [Concomitant]
     Active Substance: CALCIUM POLYCARBOPHIL
  2. BISOPROLOL FUMARATE. [Concomitant]
     Active Substance: BISOPROLOL FUMARATE
  3. CRESTOR [Concomitant]
     Active Substance: ROSUVASTATIN CALCIUM
  4. NORTRIPTYLINE HCL [Concomitant]
     Active Substance: NORTRIPTYLINE HYDROCHLORIDE
  5. ONE-A-DAY ESSENTIAL [Concomitant]
  6. DEPAKOTE [Concomitant]
     Active Substance: DIVALPROEX SODIUM
  7. POTASSIUM [Concomitant]
     Active Substance: POTASSIUM
  8. SUCRALFATE. [Concomitant]
     Active Substance: SUCRALFATE
  9. HYOSCYAMINE. [Concomitant]
     Active Substance: HYOSCYAMINE
  10. RITALIN [Concomitant]
     Active Substance: METHYLPHENIDATE HYDROCHLORIDE
  11. CALCIUM [Concomitant]
     Active Substance: CALCIUM
  12. CYMBALTA [Concomitant]
     Active Substance: DULOXETINE HYDROCHLORIDE
  13. XYREM [Suspect]
     Active Substance: SODIUM OXYBATE
     Dosage: 4 G, BID
     Route: 048
     Dates: start: 200802, end: 201003
  14. XYREM [Suspect]
     Active Substance: SODIUM OXYBATE
     Dosage: 4.5 G, BID
     Route: 048
  15. BISOPROLOL FUMARATE. [Concomitant]
     Active Substance: BISOPROLOL FUMARATE
  16. ASACOL HD [Concomitant]
     Active Substance: MESALAMINE
  17. PROVIGIL [Concomitant]
     Active Substance: MODAFINIL
  18. XYREM [Suspect]
     Active Substance: SODIUM OXYBATE
     Indication: NARCOLEPSY
     Dosage: 3 G, BID
     Route: 048
     Dates: start: 200712, end: 200802
  19. XYREM [Suspect]
     Active Substance: SODIUM OXYBATE
     Dosage: 9 G, QD
     Route: 048
  20. NEXIUM [Concomitant]
     Active Substance: ESOMEPRAZOLE MAGNESIUM
  21. RHINOCORT AQUA [Concomitant]
     Active Substance: BUDESONIDE
  22. SYNTHROID [Concomitant]
     Active Substance: LEVOTHYROXINE SODIUM
  23. MIRALAX [Concomitant]
     Active Substance: POLYETHYLENE GLYCOL 3350
  24. MIRCETTE [Concomitant]
     Active Substance: DESOGESTREL\ETHINYL ESTRADIOL
  25. KARIVA [Concomitant]
     Active Substance: DESOGESTREL\ETHINYL ESTRADIOL
  26. NATALCARE [Concomitant]
  27. CIPRO [Concomitant]
     Active Substance: CIPROFLOXACIN HYDROCHLORIDE
  28. KEFLEX [Concomitant]
     Active Substance: CEPHALEXIN
  29. PROZAC [Concomitant]
     Active Substance: FLUOXETINE HYDROCHLORIDE
  30. OXYCODONE [Concomitant]
     Active Substance: OXYCODONE
  31. DOXEPIN [Concomitant]
     Active Substance: DOXEPIN
  32. CLARINEX [Concomitant]
     Active Substance: DESLORATADINE
  33. MIRALAX [Concomitant]
     Active Substance: POLYETHYLENE GLYCOL 3350
  34. OXYCODONE [Concomitant]
     Active Substance: OXYCODONE
  35. RHINOCORT [Concomitant]
     Active Substance: BUDESONIDE
  36. WELCHOL [Concomitant]
     Active Substance: COLESEVELAM HYDROCHLORIDE
  37. CLONAZEPAM. [Concomitant]
     Active Substance: CLONAZEPAM

REACTIONS (7)
  - Dizziness [Unknown]
  - Treatment noncompliance [Unknown]
  - Amenorrhoea [Unknown]
  - Gluten sensitivity [Not Recovered/Not Resolved]
  - Nocturia [Not Recovered/Not Resolved]
  - Muscle injury [Unknown]
  - Drug dose omission [Unknown]

NARRATIVE: CASE EVENT DATE: 2015
